FAERS Safety Report 11779442 (Version 2)
Quarter: 2016Q1

REPORT INFORMATION
  Report Type: Spontaneous
  Country: US (occurrence: US)
  Receive Date: 20151125
  Receipt Date: 20160226
  Transmission Date: 20160525
  Serious: Yes (Other)
  Sender: FDA-Public Use
  Company Number: US-FRI-1000080964

PATIENT
  Sex: Male

DRUGS (10)
  1. LORATADINE. [Concomitant]
     Active Substance: LORATADINE
     Indication: HYPERSENSITIVITY
     Dates: end: 201511
  2. SUMATRIPTAN. [Concomitant]
     Active Substance: SUMATRIPTAN
     Dates: end: 201511
  3. VIIBRYD [Suspect]
     Active Substance: VILAZODONE HYDROCHLORIDE
     Dosage: 20 MG
     Route: 048
     Dates: start: 20151103, end: 20151109
  4. PROAIR HFA [Concomitant]
     Active Substance: ALBUTEROL SULFATE
  5. AUGMENTIN [Concomitant]
     Active Substance: AMOXICILLIN\CLAVULANATE POTASSIUM
     Dates: end: 20151108
  6. VIIBRYD [Suspect]
     Active Substance: VILAZODONE HYDROCHLORIDE
     Indication: MAJOR DEPRESSION
     Dosage: 40 MG
     Route: 048
     Dates: start: 2012, end: 20151102
  7. PROAIR HFA [Concomitant]
     Active Substance: ALBUTEROL SULFATE
     Indication: ASTHMA
     Dosage: 2 IN AM AND 2 IN PM
  8. VIIBRYD [Suspect]
     Active Substance: VILAZODONE HYDROCHLORIDE
     Dosage: 10 MG
     Route: 048
     Dates: start: 20151110, end: 20151116
  9. TOPAMAX [Concomitant]
     Active Substance: TOPIRAMATE
     Dosage: 50 MG
     Route: 048
     Dates: start: 201501
  10. MULTIVITAMIN [Concomitant]
     Active Substance: VITAMINS

REACTIONS (8)
  - Blindness transient [Recovered/Resolved]
  - Migraine [Recovering/Resolving]
  - Sensory disturbance [Recovered/Resolved]
  - Movement disorder [Recovering/Resolving]
  - Incontinence [Recovered/Resolved]
  - Monoplegia [Recovering/Resolving]
  - Migraine with aura [Recovering/Resolving]
  - Vitreous floaters [Recovered/Resolved]

NARRATIVE: CASE EVENT DATE: 2012
